FAERS Safety Report 16373565 (Version 2)
Quarter: 2019Q2

REPORT INFORMATION
  Report Type: Spontaneous
  Country: US (occurrence: US)
  Receive Date: 20190530
  Receipt Date: 20190627
  Transmission Date: 20190711
  Serious: Yes (Hospitalization)
  Sender: FDA-Public Use
  Company Number: US-DUSA PHARMACEUTICALS, INC.-2067606

PATIENT
  Age: 53 Year
  Sex: Female

DRUGS (2)
  1. BLU-U (DEVICE) [Suspect]
     Active Substance: DEVICE
  2. LEVULAN KERASTICK [Suspect]
     Active Substance: AMINOLEVULINIC ACID HYDROCHLORIDE
     Indication: PRODUCT USED FOR UNKNOWN INDICATION
     Route: 061
     Dates: start: 20190510

REACTIONS (9)
  - Platelet count decreased [Recovered/Resolved]
  - Hepatomegaly [Recovered/Resolved]
  - Headache [Recovered/Resolved]
  - Septic shock [Recovered/Resolved]
  - White blood cell count decreased [Recovered/Resolved]
  - Pyrexia [Recovered/Resolved]
  - Pain [Recovered/Resolved]
  - Liver disorder [Recovered/Resolved]
  - Hepatic enzyme increased [Recovered/Resolved]

NARRATIVE: CASE EVENT DATE: 2019
